FAERS Safety Report 26048208 (Version 1)
Quarter: 2025Q4

REPORT INFORMATION
  Report Type: Spontaneous
  Country: US (occurrence: None)
  Receive Date: 20251114
  Receipt Date: 20251114
  Transmission Date: 20260117
  Serious: Yes (Other)
  Sender: FDA-CTU
  Company Number: None

PATIENT
  Age: 77 Year
  Sex: Female
  Weight: 57.6 kg

DRUGS (6)
  1. BRINSUPRI [Suspect]
     Active Substance: BRENSOCATIB
     Indication: Bronchiectasis
     Dosage: 90 TABLET(S) DAILY ORAL
     Route: 048
     Dates: start: 20251006, end: 20251010
  2. LEVOTHYROXINE [Concomitant]
     Active Substance: LEVOTHYROXINE
  3. biocompatible hormones [Concomitant]
  4. SEREVENT DISKUS [Concomitant]
     Active Substance: SALMETEROL XINAFOATE
  5. VITAMINS [Concomitant]
     Active Substance: VITAMINS
  6. ASTEPRO [Concomitant]
     Active Substance: AZELASTINE HYDROCHLORIDE

REACTIONS (6)
  - Headache [None]
  - Eye pain [None]
  - Vision blurred [None]
  - Diplopia [None]
  - IVth nerve paralysis [None]
  - Therapy cessation [None]

NARRATIVE: CASE EVENT DATE: 20251010
